FAERS Safety Report 6339408-6 (Version None)
Quarter: 2009Q3

REPORT INFORMATION
  Report Type: 
  Country: None (occurrence: None)
  Receive Date: 20090828
  Receipt Date: 20081201
  Transmission Date: 20100115
  Serious: Yes (Hospitalization)
  Sender: FDA-Public Use
  Company Number: KADN20080388

PATIENT
  Age: 49 Year
  Sex: Female
  Weight: 63.5036 kg

DRUGS (19)
  1. KADIAN [Suspect]
     Indication: BACK PAIN
     Dosage: 20 MG, 2 IN 1 D, PER ORAL : 300 MG, QHS, PER ORAL
     Route: 048
     Dates: start: 20060901, end: 20081127
  2. KADIAN [Suspect]
     Indication: DEPRESSION
     Dosage: 20 MG, 2 IN 1 D, PER ORAL : 300 MG, QHS, PER ORAL
     Route: 048
     Dates: start: 20060901, end: 20081127
  3. ESTRADIOL [Concomitant]
  4. SYNTHROID [Concomitant]
  5. PREVACID [Concomitant]
  6. ATENOLOL [Concomitant]
  7. CLORAZEPATE DIPOTASSIUM [Concomitant]
  8. BUSPIRONE HCL [Concomitant]
  9. CARISOPRODOL [Concomitant]
  10. PERCOCET [Concomitant]
  11. CRESTOR [Concomitant]
  12. ZYPREXA [Concomitant]
  13. RELPAX [Concomitant]
  14. ASPIRIN [Concomitant]
  15. ALBUTEROL [Concomitant]
  16. CORTISONE CREAM [Concomitant]
  17. ROZEREM [Concomitant]
  18. WELLBUTRIN [Concomitant]
  19. TRAZODONE [Concomitant]

REACTIONS (5)
  - HEADACHE [None]
  - MYOCLONUS [None]
  - OVERDOSE [None]
  - SOMNOLENCE [None]
  - VOMITING [None]
